FAERS Safety Report 22039913 (Version 3)
Quarter: 2023Q2

REPORT INFORMATION
  Report Type: Other
  Country: CZ (occurrence: CZ)
  Receive Date: 20230227
  Receipt Date: 20230526
  Transmission Date: 20230722
  Serious: Yes (Death, Other)
  Sender: FDA-Public Use
  Company Number: CZ-ROCHE-3291779

PATIENT
  Age: 51 Year
  Sex: Male

DRUGS (14)
  1. RITUXIMAB [Suspect]
     Active Substance: RITUXIMAB
     Indication: Chronic myeloid leukaemia
     Dosage: DAY 1 OF CHEMOTHERAPY
     Route: 065
  2. RITUXIMAB [Suspect]
     Active Substance: RITUXIMAB
     Dosage: DAY 2 OF CHEMOTHERAPY
     Route: 065
  3. RITUXIMAB [Suspect]
     Active Substance: RITUXIMAB
     Dosage: DAY 3 OF CHEMOTHERAPY
     Route: 065
  4. INTERFERON ALFA-2A [Suspect]
     Active Substance: INTERFERON ALFA-2A
     Indication: Chronic myeloid leukaemia
     Dosage: 3 MIU
     Route: 065
     Dates: start: 201503
  5. DAUNORUBICIN HYDROCHLORIDE [Suspect]
     Active Substance: DAUNORUBICIN HYDROCHLORIDE
     Indication: Chronic myeloid leukaemia
     Dosage: DAYS 7-8 AND 14-15 OF CHEMOTHERAPY
     Route: 065
  6. VINCRISTINE [Suspect]
     Active Substance: VINCRISTINE
     Indication: Chronic myeloid leukaemia
     Dosage: DAYS 7 AND 14 OF CHEMOTHERAPY
     Route: 065
  7. CYCLOPHOSPHAMIDE [Suspect]
     Active Substance: CYCLOPHOSPHAMIDE
     Indication: Chronic myeloid leukaemia
     Dosage: DAYS 4-6 OF CHEMOTHERAPY
     Route: 065
  8. ASPARAGINASE [Suspect]
     Active Substance: ASPARAGINASE
     Indication: Chronic myeloid leukaemia
     Dosage: 9000 IE DAYS 17 AND 25 OF CHEMOTHERAPY
     Route: 065
  9. IMATINIB [Suspect]
     Active Substance: IMATINIB
     Indication: Chronic myeloid leukaemia
     Route: 065
  10. CYTARABINE [Suspect]
     Active Substance: CYTARABINE
     Indication: Chronic myeloid leukaemia
     Route: 037
  11. METHOTREXATE [Suspect]
     Active Substance: METHOTREXATE
     Indication: Chronic myeloid leukaemia
     Route: 037
  12. DEXAMETHASONE [Suspect]
     Active Substance: DEXAMETHASONE
     Indication: Chronic myeloid leukaemia
     Route: 037
  13. DASATINIB [Concomitant]
     Active Substance: DASATINIB
     Indication: Chronic myeloid leukaemia
     Dosage: FIVE TIMES PER WEEK.
     Route: 065
  14. GRANULOCYTE COLONY-STIMULATING FACTOR NOS [Concomitant]
     Active Substance: GRANULOCYTE COLONY-STIMULATING FACTOR NOS
     Indication: Neutropenia
     Dosage: 13 TIMES OVER EIGHT WEEKS

REACTIONS (10)
  - Nephrotic syndrome [Unknown]
  - Mucosal inflammation [Unknown]
  - Renal failure [Unknown]
  - Ileus [Unknown]
  - Liver disorder [Unknown]
  - Pancreatitis acute [Unknown]
  - Cerebral toxoplasmosis [Recovering/Resolving]
  - Pneumonia influenzal [Fatal]
  - Pneumonia fungal [Unknown]
  - Off label use [Unknown]
